FAERS Safety Report 20224083 (Version 4)
Quarter: 2022Q3

REPORT INFORMATION
  Report Type: Other
  Country: US (occurrence: None)
  Receive Date: 20211223
  Receipt Date: 20220902
  Transmission Date: 20221027
  Serious: Yes (Hospitalization, Other)
  Sender: FDA-Public Use
  Company Number: US-ROCHE-2983989

PATIENT
  Age: 56 Year
  Sex: Female
  Weight: 87.622 kg

DRUGS (12)
  1. OCREVUS [Suspect]
     Active Substance: OCRELIZUMAB
     Indication: Relapsing-remitting multiple sclerosis
     Dosage: DATE OF TREATMENT: 04/JUN/2019, 18/JUN/2019, 26/DEC/2019, 26/JUN/2020, 28/DEC/2020, 28/JUN/2021, 600
     Route: 042
  2. OCREVUS [Suspect]
     Active Substance: OCRELIZUMAB
     Indication: Multiple sclerosis
  3. ZYRTEC [Concomitant]
     Active Substance: CETIRIZINE HYDROCHLORIDE
  4. ASPIRIN [Concomitant]
     Active Substance: ASPIRIN
  5. PENLAC (UNITED STATES) [Concomitant]
  6. KLONOPIN [Concomitant]
     Active Substance: CLONAZEPAM
  7. PAMELOR [Concomitant]
     Active Substance: NORTRIPTYLINE HYDROCHLORIDE
  8. GABAPENTIN [Concomitant]
     Active Substance: GABAPENTIN
  9. NORTRIPTYLINE [Concomitant]
     Active Substance: NORTRIPTYLINE
  10. TRAMADOL [Concomitant]
     Active Substance: TRAMADOL
  11. TEMAZEPAM [Concomitant]
     Active Substance: TEMAZEPAM
  12. DRAMAMINE [Concomitant]
     Active Substance: DIMENHYDRINATE

REACTIONS (5)
  - COVID-19 [Recovered/Resolved]
  - Cataract [Not Recovered/Not Resolved]
  - Weight decreased [Unknown]
  - Brugada syndrome [Unknown]
  - Pulmonary fibrosis [Not Recovered/Not Resolved]

NARRATIVE: CASE EVENT DATE: 20211201
